FAERS Safety Report 7831543-6 (Version None)
Quarter: 2011Q4

REPORT INFORMATION
  Report Type: 
  Country: None (occurrence: None)
  Receive Date: 20111021
  Receipt Date: 20111012
  Transmission Date: 20120403
  Serious: Yes (Other)
  Sender: FDA-Public Use
  Company Number: CHPA2011US14088

PATIENT
  Age: 71 Year
  Sex: Female

DRUGS (2)
  1. TRACLEER [Concomitant]
     Indication: PULMONARY ARTERIAL HYPERTENSION
     Dosage: 125 MG, BID
     Route: 048
  2. PREVACID 24 HR [Suspect]
     Indication: GASTROOESOPHAGEAL REFLUX DISEASE
     Dosage: 30 MG, BID
     Route: 048
     Dates: start: 20110801

REACTIONS (8)
  - WRONG TECHNIQUE IN DRUG USAGE PROCESS [None]
  - THERAPEUTIC RESPONSE UNEXPECTED [None]
  - GASTRIC POLYPECTOMY [None]
  - OVERDOSE [None]
  - GASTRIC POLYPS [None]
  - INCORRECT DRUG ADMINISTRATION DURATION [None]
  - BOWEL MOVEMENT IRREGULARITY [None]
  - OFF LABEL USE [None]
